FAERS Safety Report 9641578 (Version 1)
Quarter: 2013Q4

REPORT INFORMATION
  Report Type: Report from Study
  Country: US (occurrence: US)
  Receive Date: 20131023
  Receipt Date: 20131023
  Transmission Date: 20140711
  Serious: Yes (Hospitalization, Other)
  Sender: FDA-Public Use
  Company Number: US-GLAXOSMITHKLINE-A0913486A

PATIENT
  Age: 71 Year
  Sex: Male
  Weight: 136.4 kg

DRUGS (1)
  1. AVANDIA [Suspect]
     Indication: DIABETES MELLITUS
     Route: 048
     Dates: start: 1999

REACTIONS (4)
  - Cardiovascular disorder [Unknown]
  - Cardiac disorder [Unknown]
  - Myocardial infarction [Unknown]
  - Angina unstable [Unknown]
